FAERS Safety Report 25714692 (Version 1)
Quarter: 2025Q3

REPORT INFORMATION
  Report Type: Other
  Country: CN (occurrence: CN)
  Receive Date: 20250822
  Receipt Date: 20250822
  Transmission Date: 20251020
  Serious: Yes (Hospitalization)
  Sender: QILU PHARMACEUTICAL (HAINAN) CO., LTD.
  Company Number: CN-QILU PHARMACEUTICAL (HAINAN) CO.  LTD.-QLH-000272-2025

PATIENT
  Age: 61 Year
  Sex: Male
  Weight: 58 kg

DRUGS (3)
  1. IRINOTECAN HYDROCHLORIDE [Suspect]
     Active Substance: IRINOTECAN HYDROCHLORIDE
     Indication: Colon cancer
     Dosage: 240 MG DAILY
     Route: 041
     Dates: start: 20250630, end: 20250630
  2. FLUOROURACIL [Concomitant]
     Active Substance: FLUOROURACIL
     Indication: Colon cancer
     Route: 065
     Dates: start: 20250630, end: 20250630
  3. BEVACIZUMAB [Concomitant]
     Active Substance: BEVACIZUMAB
     Indication: Colon cancer
     Route: 065
     Dates: start: 20250630, end: 20250630

REACTIONS (1)
  - Blood triglycerides increased [Recovering/Resolving]

NARRATIVE: CASE EVENT DATE: 20250715
